FAERS Safety Report 18905853 (Version 1)
Quarter: 2021Q1

REPORT INFORMATION
  Report Type: Spontaneous
  Country: US (occurrence: US)
  Receive Date: 20210217
  Receipt Date: 20210217
  Transmission Date: 20210420
  Serious: No
  Sender: FDA-Public Use
  Company Number: US-OTSUKA-2020_014055

PATIENT
  Age: 11 Year
  Sex: Male

DRUGS (27)
  1. DAUNORUBICIN [Concomitant]
     Active Substance: DAUNORUBICIN
     Indication: AUTOLOGOUS HAEMATOPOIETIC STEM CELL TRANSPLANT
     Dosage: 60 MG/M2/DOSE [ CPX?351DAYS1, 3, 5; 135 U/M2/DOSE ]  ONCE DAILY OVER 90 MINUTES
     Route: 042
  2. GEMCITABINE. [Concomitant]
     Active Substance: GEMCITABINE
     Indication: EWING^S SARCOMA
  3. PAZOPANIB [Concomitant]
     Active Substance: PAZOPANIB
     Indication: ACUTE MYELOID LEUKAEMIA
  4. MELPHALAN. [Concomitant]
     Active Substance: MELPHALAN
     Indication: AUTOLOGOUS HAEMATOPOIETIC STEM CELL TRANSPLANT
     Dosage: 100MG/M2/DOSE OR 3.33 MG/KG/DOSE, WHICHEVER IS LOWER (OVER 30 MIN FOR 1 DOSE) (DAY?4)
     Route: 042
  5. CYTARABINE. [Concomitant]
     Active Substance: CYTARABINE
     Indication: ACUTE MYELOID LEUKAEMIA
     Dosage: 135 U/M2/DOSE (CPX?351DAYS1, 3, 5; 135 U/M2/DOSE IV ONCE DAILY OVER 90 MINUTES)
     Route: 042
  6. DAUNORUBICIN [Concomitant]
     Active Substance: DAUNORUBICIN
     Indication: ACUTE MYELOID LEUKAEMIA
  7. DAUNORUBICIN [Concomitant]
     Active Substance: DAUNORUBICIN
     Indication: EWING^S SARCOMA
  8. PAZOPANIB [Concomitant]
     Active Substance: PAZOPANIB
     Indication: AUTOLOGOUS HAEMATOPOIETIC STEM CELL TRANSPLANT
     Dosage: 450 MG/M 2 /DOSE, MAX DOSE 800 MG DAILY)
     Route: 048
  9. PAZOPANIB [Concomitant]
     Active Substance: PAZOPANIB
     Indication: EWING^S SARCOMA METASTATIC
  10. BUSULFAN. [Suspect]
     Active Substance: BUSULFAN
     Indication: ACUTE MYELOID LEUKAEMIA
  11. BUSULFAN. [Suspect]
     Active Substance: BUSULFAN
     Indication: EWING^S SARCOMA
  12. MELPHALAN. [Concomitant]
     Active Substance: MELPHALAN
     Indication: EWING^S SARCOMA
  13. THIOTEPA. [Concomitant]
     Active Substance: THIOTEPA
     Indication: ACUTE MYELOID LEUKAEMIA
     Dosage: DAY 3; L 5MG/M2/DOSE, IV INFUSION OVER 4 HOURS
     Route: 042
  14. BUSULFAN. [Suspect]
     Active Substance: BUSULFAN
     Indication: AUTOLOGOUS HAEMATOPOIETIC STEM CELL TRANSPLANT
     Dosage: OVER 2 HR EVERY 6 HR OF 12 DOSES; {12KG; 1MG/KG/DOSE, }12KG: 0.8MG/KG/DOSE (DAY ?8, ?7, AND ?6)
     Route: 042
  15. THIOTEPA. [Concomitant]
     Active Substance: THIOTEPA
     Indication: EWING^S SARCOMA METASTATIC
  16. CYTARABINE. [Concomitant]
     Active Substance: CYTARABINE
     Indication: AUTOLOGOUS HAEMATOPOIETIC STEM CELL TRANSPLANT
     Dosage: 70 MG, DAY 0
     Route: 037
  17. MELPHALAN. [Concomitant]
     Active Substance: MELPHALAN
     Indication: ACUTE MYELOID LEUKAEMIA
  18. GEMCITABINE. [Concomitant]
     Active Substance: GEMCITABINE
     Indication: AUTOLOGOUS HAEMATOPOIETIC STEM CELL TRANSPLANT
     Dosage: 3600MG/M2/DOSE (DAY 8) OVER 6 HOURS
     Route: 042
  19. VINORELBINE [Concomitant]
     Active Substance: VINORELBINE TARTRATE
     Indication: ACUTE MYELOID LEUKAEMIA
  20. TOPOTECAN [Concomitant]
     Active Substance: TOPOTECAN HYDROCHLORIDE
     Indication: AUTOLOGOUS HAEMATOPOIETIC STEM CELL TRANSPLANT
     Dosage: 1 MG/M2/DOSE (24 HOUR CONTINUOUS INFUSION) DAYS 1?5
     Route: 042
  21. THIOTEPA. [Concomitant]
     Active Substance: THIOTEPA
     Indication: AUTOLOGOUS HAEMATOPOIETIC STEM CELL TRANSPLANT
     Dosage: 250MG/M2/DOSE OR 8.33MG/KG/DOSE (OVER 3 HR EVERY 24 HR FOR 2 DOSES) (DAY ?3, ?2)
     Route: 042
  22. VINORELBINE [Concomitant]
     Active Substance: VINORELBINE TARTRATE
     Indication: AUTOLOGOUS HAEMATOPOIETIC STEM CELL TRANSPLANT
     Dosage: 20MG/M2/DOSE (DAY 1, 8, 15 AND 21)
     Route: 042
  23. VINORELBINE [Concomitant]
     Active Substance: VINORELBINE TARTRATE
     Indication: EWING^S SARCOMA
  24. TOPOTECAN [Concomitant]
     Active Substance: TOPOTECAN HYDROCHLORIDE
     Indication: ACUTE MYELOID LEUKAEMIA
  25. GEMCITABINE. [Concomitant]
     Active Substance: GEMCITABINE
     Indication: ACUTE MYELOID LEUKAEMIA
  26. TOPOTECAN [Concomitant]
     Active Substance: TOPOTECAN HYDROCHLORIDE
     Indication: EWING^S SARCOMA
  27. CYTARABINE. [Concomitant]
     Active Substance: CYTARABINE
     Indication: EWING^S SARCOMA

REACTIONS (1)
  - Drug effective for unapproved indication [Unknown]
